FAERS Safety Report 23823270 (Version 2)
Quarter: 2024Q2

REPORT INFORMATION
  Report Type: Spontaneous
  Country: AU (occurrence: AU)
  Receive Date: 20240507
  Receipt Date: 20240618
  Transmission Date: 20240716
  Serious: Yes (Other)
  Sender: FDA-Public Use
  Company Number: AU-HALEON-2171947

PATIENT
  Age: 4 Month
  Sex: Female

DRUGS (2)
  1. PANADOL [Suspect]
     Active Substance: ACETAMINOPHEN
     Indication: Product used for unknown indication
     Dates: start: 20240501
  2. PANADOL [Suspect]
     Active Substance: ACETAMINOPHEN
     Dates: start: 20240501

REACTIONS (1)
  - Choking [Unknown]

NARRATIVE: CASE EVENT DATE: 20240501
